FAERS Safety Report 9708729 (Version 2)
Quarter: 2014Q1

REPORT INFORMATION
  Report Type: Spontaneous
  Country: US (occurrence: US)
  Receive Date: 20131125
  Receipt Date: 20140114
  Transmission Date: 20141002
  Serious: Yes (Hospitalization, Other)
  Sender: FDA-Public Use
  Company Number: US-GLAXOSMITHKLINE-A1051104A

PATIENT
  Age: 31 Year
  Sex: Female

DRUGS (1)
  1. FLOLAN [Suspect]
     Indication: COR PULMONALE CHRONIC
     Dosage: 37NGKM CONTINUOUS
     Route: 042
     Dates: start: 20080903

REACTIONS (2)
  - Staphylococcal infection [Recovered/Resolved]
  - Central venous catheterisation [Recovered/Resolved]
